FAERS Safety Report 7780875-9 (Version None)
Quarter: 2011Q3

REPORT INFORMATION
  Report Type: 
  Country: None (occurrence: None)
  Receive Date: 20110927
  Receipt Date: 20110906
  Transmission Date: 20111222
  Serious: Yes (Other)
  Sender: FDA-Public Use
  Company Number: US-BAYER-2011-084359

PATIENT
  Age: 41 Year
  Sex: Female
  Weight: 88.435 kg

DRUGS (2)
  1. ALEVE (CAPLET) [Suspect]
     Dosage: COUNT SIZE 100S
     Route: 048
  2. ALEVE (CAPLET) [Suspect]
     Indication: ANALGESIC THERAPY
     Dosage: COUNT SIZE 100S
     Route: 048
     Dates: start: 20070101

REACTIONS (1)
  - SYSTEMIC LUPUS ERYTHEMATOSUS [None]
